FAERS Safety Report 17376880 (Version 1)
Quarter: 2020Q1

REPORT INFORMATION
  Report Type: Spontaneous
  Country: US (occurrence: US)
  Receive Date: 20200206
  Receipt Date: 20200206
  Transmission Date: 20200409
  Serious: No
  Sender: FDA-Public Use
  Company Number: US-ELI_LILLY_AND_COMPANY-US202001014343

PATIENT
  Sex: Female

DRUGS (1)
  1. EMGALITY [Suspect]
     Active Substance: GALCANEZUMAB-GNLM
     Indication: MIGRAINE
     Dosage: 1 DOSAGE FORM, UNKNOWN
     Route: 065
     Dates: start: 20190912

REACTIONS (9)
  - Head discomfort [Unknown]
  - Musculoskeletal discomfort [Unknown]
  - Constipation [Unknown]
  - Weight increased [Unknown]
  - Abdominal distension [Unknown]
  - Irritability [Unknown]
  - Anxiety [Unknown]
  - Blood pressure increased [Unknown]
  - Fear [Unknown]

NARRATIVE: CASE EVENT DATE: 20190912
